FAERS Safety Report 6502680-3 (Version None)
Quarter: 2009Q4

REPORT INFORMATION
  Report Type: 
  Country: None (occurrence: None)
  Receive Date: 20091127
  Receipt Date: 20090206
  Transmission Date: 20100525
  Serious: Yes (Other)
  Sender: FDA-Public Use
  Company Number: WAES 0902USA01605

PATIENT
  Age: 51 Year
  Sex: Female
  Weight: 68.0396 kg

DRUGS (1)
  1. FOSAMAX [Suspect]
     Indication: OSTEOPOROSIS
     Dosage: 70 MG/WKY/PO
     Route: 048
     Dates: start: 19990101, end: 20070914

REACTIONS (16)
  - ABSCESS [None]
  - ARTHROPATHY [None]
  - BONE DISORDER [None]
  - COMPLEX REGIONAL PAIN SYNDROME [None]
  - FRACTURE [None]
  - HYPERTENSION [None]
  - IMPAIRED HEALING [None]
  - ORAL DISORDER [None]
  - ORAL PAIN [None]
  - OSTEOARTHRITIS [None]
  - OSTEONECROSIS [None]
  - PERIODONTAL DISEASE [None]
  - PULMONARY FUNCTION TEST ABNORMAL [None]
  - RESORPTION BONE INCREASED [None]
  - RHEUMATOID ARTHRITIS [None]
  - SARCOIDOSIS [None]
